FAERS Safety Report 4627428-9 (Version None)
Quarter: 2005Q1

REPORT INFORMATION
  Report Type: 
  Country: None (occurrence: None)
  Receive Date: 20050331
  Receipt Date: 20050424
  Transmission Date: 20050727
  Serious: Yes (Other)
  Sender: FDA-Public Use
  Company Number: GBWYE535124MAR05

PATIENT
  Age: 82 Year
  Sex: Male

DRUGS (2)
  1. EFFEXOR [Suspect]
     Dosage: SEE IMAGE
  2. . [Concomitant]

REACTIONS (2)
  - CATATONIA [None]
  - DRUG WITHDRAWAL SYNDROME [None]
